FAERS Safety Report 23867964 (Version 1)
Quarter: 2024Q2

REPORT INFORMATION
  Report Type: Spontaneous
  Country: FR (occurrence: FR)
  Receive Date: 20240517
  Receipt Date: 20240517
  Transmission Date: 20240717
  Serious: Yes (Hospitalization)
  Sender: FDA-Public Use
  Company Number: FR-PFIZER INC-HQWYE545314NOV05

PATIENT
  Age: 63 Year
  Sex: Male

DRUGS (12)
  1. CORDARONE [Interacting]
     Active Substance: AMIODARONE HYDROCHLORIDE
     Indication: Arrhythmia supraventricular
     Dosage: 200 MG, 1X/DAY
     Route: 048
  2. SOLU-MEDROL [Interacting]
     Active Substance: METHYLPREDNISOLONE SODIUM SUCCINATE
     Indication: Dyspnoea
     Dosage: 80 MG, 1X/DAY
     Route: 042
     Dates: start: 20050920, end: 20050923
  3. PREDNISOLONE SODIUM METAZOATE [Interacting]
     Active Substance: PREDNISOLONE SODIUM METAZOATE
     Indication: Dyspnoea
     Dosage: 60 MG, 1X/DAY
     Route: 048
     Dates: start: 20050923, end: 20050925
  4. PREDNISOLONE SODIUM METAZOATE [Interacting]
     Active Substance: PREDNISOLONE SODIUM METAZOATE
     Dosage: UNSPECIFIED, PROGRESSIVELY DECREASED
     Route: 048
     Dates: start: 20050926, end: 20051001
  5. FLUINDIONE [Interacting]
     Active Substance: FLUINDIONE
     Dosage: 30 MG, 1X/DAY
     Route: 048
     Dates: end: 20050920
  6. FLUINDIONE [Interacting]
     Active Substance: FLUINDIONE
     Dosage: 20 MG, 1X/DAY
     Route: 048
     Dates: start: 20050921, end: 20050923
  7. FLUINDIONE [Interacting]
     Active Substance: FLUINDIONE
     Dosage: 10 MG, 1X/DAY
     Route: 048
     Dates: start: 20050925
  8. FORADIL [Concomitant]
     Active Substance: FORMOTEROL FUMARATE
     Route: 045
  9. FUROSEMIDE [Concomitant]
     Active Substance: FUROSEMIDE
     Route: 048
  10. GLIMEPIRIDE [Concomitant]
     Active Substance: GLIMEPIRIDE
     Route: 048
  11. COMBIVENT [Concomitant]
     Active Substance: ALBUTEROL SULFATE\IPRATROPIUM BROMIDE
     Route: 045
  12. VALSARTAN [Concomitant]
     Active Substance: VALSARTAN
     Route: 048

REACTIONS (4)
  - Potentiating drug interaction [Recovered/Resolved]
  - Asthma [Unknown]
  - Prothrombin time ratio decreased [Recovered/Resolved]
  - International normalised ratio increased [Recovered/Resolved]

NARRATIVE: CASE EVENT DATE: 20050101
